FAERS Safety Report 5501388-0 (Version None)
Quarter: 2007Q4

REPORT INFORMATION
  Report Type: 
  Country: None (occurrence: None)
  Receive Date: 20071026
  Receipt Date: 20071015
  Transmission Date: 20080405
  Serious: Yes (Other)
  Sender: FDA-Public Use
  Company Number: GXKR2007DE08897

PATIENT
  Sex: Female

DRUGS (22)
  1. RANITIDINE [Suspect]
     Indication: PROPHYLAXIS
     Dosage: SEE IMAGE
     Dates: start: 20070620, end: 20070620
  2. RANITIDINE [Suspect]
     Indication: PROPHYLAXIS
     Dosage: SEE IMAGE
     Dates: start: 20070711, end: 20070711
  3. RANITIDINE [Suspect]
     Indication: PROPHYLAXIS
     Dosage: SEE IMAGE
     Dates: start: 20070801, end: 20070801
  4. RANITIDINE [Suspect]
     Indication: PROPHYLAXIS
     Dosage: SEE IMAGE
     Dates: start: 20070822, end: 20070822
  5. RANITIDINE [Suspect]
     Indication: PROPHYLAXIS
     Dosage: SEE IMAGE
     Dates: start: 20070912, end: 20070912
  6. RANITIDINE [Suspect]
     Indication: PROPHYLAXIS
     Dosage: SEE IMAGE
     Dates: start: 20071004, end: 20071004
  7. CARBOPLATIN [Suspect]
     Indication: CHEMOTHERAPY
     Dosage: SEE IMAGE
     Route: 042
     Dates: start: 20070620, end: 20070620
  8. CARBOPLATIN [Suspect]
     Indication: CHEMOTHERAPY
     Dosage: SEE IMAGE
     Route: 042
     Dates: start: 20070711, end: 20070711
  9. CARBOPLATIN [Suspect]
     Indication: CHEMOTHERAPY
     Dosage: SEE IMAGE
     Route: 042
     Dates: start: 20070801, end: 20070801
  10. CARBOPLATIN [Suspect]
     Indication: CHEMOTHERAPY
     Dosage: SEE IMAGE
     Route: 042
     Dates: start: 20070822, end: 20070822
  11. CARBOPLATIN [Suspect]
     Indication: CHEMOTHERAPY
     Dosage: SEE IMAGE
     Route: 042
     Dates: start: 20070912, end: 20070912
  12. CARBOPLATIN [Suspect]
     Indication: CHEMOTHERAPY
     Dosage: SEE IMAGE
     Route: 042
     Dates: start: 20071004, end: 20071004
  13. GABAPENTIN [Suspect]
     Indication: NEUROTOXICITY
     Dosage: ORAL
     Route: 048
  14. PACLITAXEL [Suspect]
     Indication: FALLOPIAN TUBE CANCER
     Dosage: SEE IMAGE
     Route: 042
     Dates: start: 20070620, end: 20070620
  15. PACLITAXEL [Suspect]
     Indication: FALLOPIAN TUBE CANCER
     Dosage: SEE IMAGE
     Route: 042
     Dates: start: 20070711, end: 20070711
  16. PACLITAXEL [Suspect]
     Indication: FALLOPIAN TUBE CANCER
     Dosage: SEE IMAGE
     Route: 042
     Dates: start: 20070801, end: 20070801
  17. PACLITAXEL [Suspect]
     Indication: FALLOPIAN TUBE CANCER
     Dosage: SEE IMAGE
     Route: 042
     Dates: start: 20070822, end: 20070822
  18. PACLITAXEL [Suspect]
     Indication: FALLOPIAN TUBE CANCER
     Dosage: SEE IMAGE
     Route: 042
     Dates: start: 20070912, end: 20070912
  19. PACLITAXEL [Suspect]
     Indication: FALLOPIAN TUBE CANCER
     Dosage: SEE IMAGE
     Route: 042
     Dates: start: 20071004, end: 20071004
  20. SODIUM CHLORIDE (SODIUM CHLORIDE) SOLUTION FOR INFUSION, 0.9% [Concomitant]
  21. TROPISETRON (TROPISETRON) [Concomitant]
  22. METOCLOPRAMIDE (METOCLOPRAMIDE) [Concomitant]

REACTIONS (5)
  - ABDOMINAL PAIN UPPER [None]
  - DYSGEUSIA [None]
  - MALAISE [None]
  - NAIL DISORDER [None]
  - NEUROTOXICITY [None]
